FAERS Safety Report 7340669-5 (Version None)
Quarter: 2011Q1

REPORT INFORMATION
  Report Type: 
  Country: None (occurrence: None)
  Receive Date: 20110309
  Receipt Date: 20110127
  Transmission Date: 20110831
  Serious: No
  Sender: FDA-Public Use
  Company Number: BR-SANOFI-AVENTIS-2011SA006694

PATIENT
  Sex: Female

DRUGS (6)
  1. DICLOFENAC SODIUM [Concomitant]
     Route: 048
  2. PARACETAMOL [Concomitant]
     Route: 065
  3. ARAVA [Suspect]
     Indication: RHEUMATOID ARTHRITIS
     Route: 048
     Dates: start: 20100501, end: 20110125
  4. AMLODIPINE [Concomitant]
     Indication: HYPERTENSION
     Route: 065
  5. HYDROXYCHLOROQUINE [Concomitant]
     Route: 048
  6. LANSOPRAZOLE [Concomitant]
     Route: 048

REACTIONS (2)
  - NAUSEA [None]
  - DRUG EXPOSURE DURING PREGNANCY [None]
